FAERS Safety Report 7601810-X (Version None)
Quarter: 2011Q3

REPORT INFORMATION
  Report Type: 
  Country: None (occurrence: None)
  Receive Date: 20110711
  Receipt Date: 20110705
  Transmission Date: 20111222
  Serious: No
  Sender: FDA-Public Use
  Company Number: US-PFIZER INC-2011150300

PATIENT
  Sex: Female
  Weight: 52.2 kg

DRUGS (3)
  1. PREMARIN [Suspect]
     Indication: VULVOVAGINAL DRYNESS
     Dosage: 5.5 MG, UNK
     Route: 067
     Dates: start: 20110614, end: 20110623
  2. PREMARIN [Suspect]
     Indication: DYSPAREUNIA
  3. ESTRACE [Concomitant]
     Indication: MENOPAUSE
     Dosage: UNK

REACTIONS (1)
  - INSOMNIA [None]
